FAERS Safety Report 20523992 (Version 1)
Quarter: 2022Q1

REPORT INFORMATION
  Report Type: Spontaneous
  Country: US (occurrence: US)
  Receive Date: 20220228
  Receipt Date: 20220228
  Transmission Date: 20220424
  Serious: No
  Sender: FDA-Public Use
  Company Number: US-AMGEN-USASP2022030108

PATIENT
  Sex: Male

DRUGS (2)
  1. MVASI [Suspect]
     Active Substance: BEVACIZUMAB-AWWB
     Indication: Brain neoplasm
     Dosage: 1000 MILLIGRAM
     Route: 065
     Dates: start: 20211213
  2. KANJINTI [Suspect]
     Active Substance: TRASTUZUMAB-ANNS
     Indication: Brain neoplasm
     Dosage: UNK
     Route: 065

REACTIONS (1)
  - Hypertension [Unknown]
